FAERS Safety Report 7645655-3 (Version None)
Quarter: 2011Q3

REPORT INFORMATION
  Report Type: 
  Country: None (occurrence: None)
  Receive Date: 20110729
  Receipt Date: 20110728
  Transmission Date: 20111222
  Serious: No
  Sender: FDA-Public Use
  Company Number: US-PFIZER INC-2011172685

PATIENT
  Sex: Female
  Weight: 57.143 kg

DRUGS (3)
  1. CHANTIX [Suspect]
     Dosage: 1 MG, 1X/DAY
     Dates: start: 20110701, end: 20110725
  2. CHANTIX [Suspect]
     Indication: SMOKING CESSATION THERAPY
     Dosage: 0.5 MG, UNK
     Route: 048
     Dates: start: 20110604, end: 20110101
  3. CHANTIX [Suspect]
     Dosage: 1 MG, 2X/DAY
     Dates: start: 20110101, end: 20110701

REACTIONS (4)
  - URTICARIA [None]
  - ABDOMINAL PAIN [None]
  - FURUNCLE [None]
  - CONSTIPATION [None]
